FAERS Safety Report 16033070 (Version 3)
Quarter: 2019Q3

REPORT INFORMATION
  Report Type: Spontaneous
  Country: PK (occurrence: PK)
  Receive Date: 20190305
  Receipt Date: 20190703
  Transmission Date: 20191004
  Serious: Yes (Other)
  Sender: FDA-Public Use
  Company Number: PK-AMGEN-PAKSP2019034286

PATIENT
  Age: 29 Year
  Sex: Male
  Weight: 74 kg

DRUGS (5)
  1. METHOTREXATE. [Concomitant]
     Active Substance: METHOTREXATE
     Dosage: 20 MILLIGRAM, WEEKLY
  2. ESSO [Concomitant]
     Dosage: 20 MILLIGRAM
  3. ENBREL [Suspect]
     Active Substance: ETANERCEPT
     Indication: PSORIATIC ARTHROPATHY
     Dosage: 50 MG, WEEKLY
     Route: 065
     Dates: start: 20180625, end: 201812
  4. FOLIC ACID. [Concomitant]
     Active Substance: FOLIC ACID
     Dosage: 5 MILLIGRAM, WEEKLY
  5. AIRTAL [Concomitant]
     Active Substance: ACECLOFENAC
     Dosage: 100 MILLIGRAM

REACTIONS (4)
  - Weight increased [Unknown]
  - Cough [Unknown]
  - Tuberculosis [Unknown]
  - Pain in extremity [Unknown]

NARRATIVE: CASE EVENT DATE: 201903
